FAERS Safety Report 25839686 (Version 1)
Quarter: 2025Q3

REPORT INFORMATION
  Report Type: Spontaneous
  Country: EU (occurrence: EU)
  Receive Date: 20250924
  Receipt Date: 20250924
  Transmission Date: 20251021
  Serious: Yes (Other)
  Sender: ROCHE
  Company Number: EU-Accord-296736

PATIENT
  Age: 79 Year
  Sex: Male

DRUGS (1)
  1. TRASTUZUMAB [Suspect]
     Active Substance: TRASTUZUMAB
     Indication: Breast cancer stage III
     Route: 065

REACTIONS (5)
  - Corneal disorder [Recovered/Resolved]
  - Corneal thinning [Recovered/Resolved]
  - Conjunctival hyperaemia [Recovered/Resolved]
  - Ulcerative keratitis [Unknown]
  - Punctate keratitis [Recovered/Resolved]
